FAERS Safety Report 24046724 (Version 1)
Quarter: 2024Q3

REPORT INFORMATION
  Report Type: Spontaneous
  Country: CN (occurrence: CN)
  Receive Date: 20240703
  Receipt Date: 20240703
  Transmission Date: 20241016
  Serious: Yes (Hospitalization)
  Sender: CMP PHARMA
  Company Number: CN-CMP PHARMA-2024CMP00033

PATIENT
  Age: 92 Year
  Sex: Male

DRUGS (6)
  1. SPIRONOLACTONE [Suspect]
     Active Substance: SPIRONOLACTONE
     Dosage: 20 MG, 1X/DAY
  2. AMLODIPINE [Suspect]
     Active Substance: AMLODIPINE BESYLATE
     Dosage: 5 MG, 1X/DAY
  3. AMLODIPINE [Suspect]
     Active Substance: AMLODIPINE BESYLATE
     Dosage: 5 MG, 1X/DAY (UPON DISCHARGE)
  4. FUROSEMIDE [Suspect]
     Active Substance: FUROSEMIDE
     Dosage: 20 MG, 1X/DAY
  5. BENAZEPRIL [Suspect]
     Active Substance: BENAZEPRIL HYDROCHLORIDE
     Dosage: 10 MG, 1X/DAY
  6. METOPROLOL [Suspect]
     Active Substance: METOPROLOL
     Dosage: 12.5 MG, 1X/DAY

REACTIONS (2)
  - BRASH syndrome [Recovered/Resolved]
  - Hypovolaemia [Recovered/Resolved]
